FAERS Safety Report 19222412 (Version 2)
Quarter: 2022Q3

REPORT INFORMATION
  Report Type: Spontaneous
  Country: US (occurrence: US)
  Receive Date: 20210506
  Receipt Date: 20220910
  Transmission Date: 20221026
  Serious: Yes (Other)
  Sender: FDA-Public Use
  Company Number: US-SA-SAC20210503000925

PATIENT
  Age: 52 Year
  Sex: Female

DRUGS (1)
  1. ZANTAC [Suspect]
     Active Substance: RANITIDINE HYDROCHLORIDE
     Indication: Dyspepsia
     Dosage: UNK, QD
     Dates: start: 200201, end: 201701

REACTIONS (2)
  - Renal cancer [Unknown]
  - Uterine cancer [Unknown]

NARRATIVE: CASE EVENT DATE: 20150101
